FAERS Safety Report 11866566 (Version 1)
Quarter: 2015Q4

REPORT INFORMATION
  Report Type: Spontaneous
  Country: US (occurrence: US)
  Receive Date: 20151224
  Receipt Date: 20151224
  Transmission Date: 20160305
  Serious: No
  Sender: FDA-Public Use
  Company Number: US-HORIZON-ACT-0225-2015

PATIENT
  Age: 25 Year
  Sex: Male

DRUGS (4)
  1. SMZ/TMP DS TAB 800-160 [Concomitant]
  2. ITRACONAZOLE CAP 100MG [Concomitant]
  3. ACTIMMUNE [Suspect]
     Active Substance: INTERFERON GAMMA-1B
     Indication: NEUTROPHIL FUNCTION DISORDER
     Dosage: 0.175 ML THREE TIMES WEEKLY
     Route: 058
     Dates: start: 201412
  4. FOLIC ACID TAB 1 MG [Concomitant]

REACTIONS (1)
  - Chills [Unknown]

NARRATIVE: CASE EVENT DATE: 201512
